FAERS Safety Report 13154505 (Version 1)
Quarter: 2017Q1

REPORT INFORMATION
  Report Type: Spontaneous
  Country: US (occurrence: US)
  Receive Date: 20170126
  Receipt Date: 20170126
  Transmission Date: 20170428
  Serious: Yes (Life-Threatening, Hospitalization, Disabling, Other)
  Sender: FDA-Public Use
  Company Number: None

PATIENT
  Age: 32 Year
  Sex: Male

DRUGS (6)
  1. NAVANE [Suspect]
     Active Substance: THIOTHIXENE
     Indication: TOURETTE^S DISORDER
     Dosage: QUANITY 30 MILLIGRAMS TO 80 MILLIGRAMS
     Dates: start: 19860814
  2. COGENTIN [Concomitant]
     Active Substance: BENZTROPINE MESYLATE
  3. NAVANE [Suspect]
     Active Substance: THIOTHIXENE
     Indication: SCHIZOPHRENIA
     Dosage: QUANITY 30 MILLIGRAMS TO 80 MILLIGRAMS
     Dates: start: 19860814
  4. ATIVAN [Concomitant]
     Active Substance: LORAZEPAM
  5. HALOPERIDOL. [Concomitant]
     Active Substance: HALOPERIDOL
  6. TYLENOL [Concomitant]
     Active Substance: ACETAMINOPHEN

REACTIONS (3)
  - Seizure [None]
  - Drooling [None]
  - Overdose [None]

NARRATIVE: CASE EVENT DATE: 198608
